FAERS Safety Report 8807492 (Version 1)
Quarter: 2012Q4

REPORT INFORMATION
  Report Type: 
  Country: US (occurrence: US)
  Receive Date: 20120925
  Receipt Date: 20120925
  Transmission Date: 20130627
  Serious: No
  Sender: FDA-Public Use
  Company Number: US-PFIZER INC-2012235092

PATIENT
  Age: 51 Year
  Sex: Female
  Weight: 88.4 kg

DRUGS (6)
  1. CHANTIX [Suspect]
     Indication: SMOKING CESSATION THERAPY
     Dosage: UNK
     Route: 048
  2. OXYCODONE HYDROCHLORIDE [Suspect]
     Indication: PAIN
     Dosage: one and a half tablet of 30 mg every eight hours
     Route: 048
  3. OXYCODONE HYDROCHLORIDE [Suspect]
     Indication: INTERVERTEBRAL DISC DEGENERATION
  4. DURAGESIC [Suspect]
     Indication: PAIN
     Dosage: 100mcg/hr in every two days
     Route: 062
  5. DURAGESIC [Suspect]
     Indication: INTERVERTEBRAL DISC DEGENERATION
  6. XANAX [Concomitant]
     Indication: MUSCLE SPASMS
     Dosage: 1 mg, 3x/day
     Route: 048

REACTIONS (3)
  - Abnormal dreams [Recovered/Resolved]
  - Malaise [Unknown]
  - Fatigue [Unknown]
